FAERS Safety Report 22245872 (Version 1)
Quarter: 2023Q2

REPORT INFORMATION
  Report Type: Other
  Country: CA (occurrence: CA)
  Receive Date: 20230424
  Receipt Date: 20230424
  Transmission Date: 20230721
  Serious: Yes (Other)
  Sender: FDA-Public Use
  Company Number: CA-GLENMARK PHARMACEUTICALS-2023GMK081126

PATIENT

DRUGS (3)
  1. DROSPIRENONE\ETHINYL ESTRADIOL [Suspect]
     Active Substance: DROSPIRENONE\ETHINYL ESTRADIOL
     Indication: Menstruation irregular
     Dosage: UNK
     Route: 048
  2. HEPARIN [Concomitant]
     Active Substance: HEPARIN SODIUM
     Indication: Product used for unknown indication
     Dosage: 5000 IU INTERNATIONAL UNIT(S), 3 EVERY 1 DAYS
     Route: 058
  3. PHENYTOIN [Concomitant]
     Active Substance: PHENYTOIN
     Indication: Product used for unknown indication
     Dosage: 125 MILLIGRAM, 3 EVERY 1 DAYS
     Route: 042

REACTIONS (4)
  - Encephalitis [Unknown]
  - Cerebral venous sinus thrombosis [Unknown]
  - Cerebral haemorrhage [Unknown]
  - Cerebral infarction [Unknown]
